FAERS Safety Report 5673294-2 (Version None)
Quarter: 2008Q1

REPORT INFORMATION
  Report Type: 
  Country: None (occurrence: None)
  Receive Date: 20080319
  Receipt Date: 20080307
  Transmission Date: 20080703
  Serious: Yes (Hospitalization, Other)
  Sender: FDA-Public Use
  Company Number: US-ELI_LILLY_AND_COMPANY-US200802004763

PATIENT
  Sex: Female
  Weight: 69.342 kg

DRUGS (5)
  1. FORTEO [Suspect]
     Indication: OSTEOPOROSIS
     Dosage: 20 UG, UNK
     Route: 058
     Dates: start: 20060401, end: 20080115
  2. MULTI-VITAMIN [Concomitant]
     Dosage: UNK, DAILY (1/D)
  3. CALCIUM D [Concomitant]
     Dosage: UNK, 2/D
  4. SYNTHROID [Concomitant]
     Dosage: 50 UG, DAILY (1/D)
  5. TRIAMCINOLONE [Concomitant]
     Dosage: UNK, AS NEEDED
     Route: 061

REACTIONS (3)
  - ARTHRALGIA [None]
  - FALL [None]
  - RADIUS FRACTURE [None]
